FAERS Safety Report 15850703 (Version 5)
Quarter: 2019Q1

REPORT INFORMATION
  Report Type: Report from Study
  Country: US (occurrence: US)
  Receive Date: 20190121
  Receipt Date: 20190329
  Transmission Date: 20190417
  Serious: Yes (Death, Hospitalization)
  Sender: FDA-Public Use
  Company Number: US-ACTELION-A-NJ2018-174459

PATIENT
  Age: 84 Year
  Sex: Male
  Weight: 65.31 kg

DRUGS (4)
  1. OPSUMIT [Suspect]
     Active Substance: MACITENTAN
     Indication: PULMONARY HYPERTENSION
     Dosage: 10 MG, QD
     Route: 048
  2. TYVASO [Concomitant]
     Active Substance: TREPROSTINIL
  3. ADCIRCA [Concomitant]
     Active Substance: TADALAFIL
  4. AMLODIPINE [Concomitant]
     Active Substance: AMLODIPINE BESYLATE

REACTIONS (9)
  - Pneumonia [Unknown]
  - Condition aggravated [Unknown]
  - Death [Fatal]
  - Haemoptysis [Unknown]
  - Dyspnoea exertional [Unknown]
  - Rehabilitation therapy [Unknown]
  - Oedema [Unknown]
  - Bacterial sepsis [Unknown]
  - Non-cardiac chest pain [Unknown]

NARRATIVE: CASE EVENT DATE: 20190306
